FAERS Safety Report 21494826 (Version 1)
Quarter: 2022Q4

REPORT INFORMATION
  Report Type: Report from Study
  Country: US (occurrence: US)
  Receive Date: 20221021
  Receipt Date: 20221021
  Transmission Date: 20230112
  Serious: Yes (Death, Hospitalization)
  Sender: FDA-Public Use
  Company Number: US-ABBVIE-22K-163-4520708-00

PATIENT
  Age: 72 Year
  Sex: Male

DRUGS (2)
  1. DUOPA [Suspect]
     Active Substance: CARBIDOPA\LEVODOPA
     Indication: Parkinson^s disease
     Route: 050
     Dates: start: 20211104
  2. DUOPA [Suspect]
     Active Substance: CARBIDOPA\LEVODOPA
     Indication: Product used for unknown indication
     Route: 050
     Dates: start: 20211104

REACTIONS (11)
  - Death [Fatal]
  - Unevaluable event [Unknown]
  - Hallucination [Unknown]
  - Device issue [Not Recovered/Not Resolved]
  - Fall [Unknown]
  - Product use complaint [Unknown]
  - Device defective [Unknown]
  - Feeling abnormal [Unknown]
  - Dementia [Unknown]
  - Crying [Unknown]
  - Device power source issue [Unknown]

NARRATIVE: CASE EVENT DATE: 20220911
